FAERS Safety Report 7466152-4 (Version None)
Quarter: 2011Q2

REPORT INFORMATION
  Report Type: 
  Country: None (occurrence: None)
  Receive Date: 20110509
  Receipt Date: 20080111
  Transmission Date: 20111010
  Serious: Yes (Other)
  Sender: FDA-Public Use
  Company Number: GXKR2008CH12532

PATIENT
  Age: 64 Year
  Sex: Female

DRUGS (11)
  1. CISPLATIN [Suspect]
     Dosage: UNK UKN, UNK
     Route: 033
     Dates: start: 20070901, end: 20070901
  2. MITOMYCIN [Suspect]
     Dosage: UNK UKN, UNK
     Route: 033
     Dates: start: 20070901, end: 20070901
  3. ACETAMINOPHEN [Suspect]
     Dosage: 4 G, QD
     Dates: start: 20070927
  4. TENORMIN [Suspect]
     Dosage: 50 MG, UNK
     Route: 048
  5. NEXIUM [Suspect]
     Dosage: 40 MG, UNK
     Route: 048
     Dates: end: 20071024
  6. ENOXAPARIN SODIUM [Concomitant]
     Route: 058
  7. LEXOTANIL [Concomitant]
     Route: 048
  8. TIENAM [Concomitant]
     Route: 042
     Dates: start: 20071007, end: 20071016
  9. DROPERIDOL [Concomitant]
     Route: 048
     Dates: start: 20070930, end: 20071009
  10. PASPERTIN                               /GFR/ [Concomitant]
     Route: 065
     Dates: start: 20071003
  11. ELTROXIN ^GLAXO^ [Concomitant]
     Route: 048

REACTIONS (5)
  - HEPATITIS CHOLESTATIC [None]
  - PANCREATIC ENZYMES INCREASED [None]
  - JAUNDICE CHOLESTATIC [None]
  - CHOLESTASIS [None]
  - CHOLANGITIS ACUTE [None]
